FAERS Safety Report 7289401-4 (Version None)
Quarter: 2011Q1

REPORT INFORMATION
  Report Type: 
  Country: None (occurrence: None)
  Receive Date: 20110211
  Receipt Date: 20110128
  Transmission Date: 20110831
  Serious: Yes (Hospitalization)
  Sender: FDA-Public Use
  Company Number: FR-CELGENEUS-056-21880-10102423

PATIENT
  Sex: Female

DRUGS (11)
  1. REVLIMID [Suspect]
     Route: 048
     Dates: start: 20101018, end: 20101123
  2. DEXAMETHASONE [Concomitant]
     Route: 065
     Dates: start: 20100923
  3. DEXAMETHASONE [Concomitant]
     Route: 065
     Dates: start: 20101010, end: 20101013
  4. REVLIMID [Suspect]
     Route: 048
     Dates: start: 20100923, end: 20101009
  5. PRIMPERAN TAB [Concomitant]
     Indication: NAUSEA
     Route: 065
  6. DEXAMETHASONE [Concomitant]
     Route: 065
     Dates: start: 20101116
  7. BACTRIM DS [Concomitant]
     Route: 065
  8. ZELITREX [Concomitant]
     Route: 065
  9. POLARAMINE [Concomitant]
     Route: 065
  10. NEXIUM [Concomitant]
     Route: 065
  11. XANAX [Concomitant]
     Route: 065

REACTIONS (5)
  - PRURITUS GENERALISED [None]
  - FACE OEDEMA [None]
  - OEDEMA PERIPHERAL [None]
  - CYTOMEGALOVIRUS INFECTION [None]
  - SKIN EXFOLIATION [None]
